FAERS Safety Report 11942280 (Version 1)
Quarter: 2016Q1

REPORT INFORMATION
  Report Type: Spontaneous
  Country: PK (occurrence: PK)
  Receive Date: 20160125
  Receipt Date: 20160125
  Transmission Date: 20160526
  Serious: Yes (Death)
  Sender: FDA-Public Use
  Company Number: PK-CIPLA LTD.-2016PK00283

PATIENT

DRUGS (1)
  1. GEMCITABINE [Suspect]
     Active Substance: GEMCITABINE\GEMCITABINE HYDROCHLORIDE
     Indication: HEAD AND NECK CANCER
     Dosage: 150MG/M2 OR A TOTAL DOSE NOT EXCEEDING 200 MG WAS GIVEN ON DAYS 1, 8, 15,22, 29, AND 36 DURING RADIA
     Route: 065

REACTIONS (1)
  - Death [Fatal]
